FAERS Safety Report 25531319 (Version 2)
Quarter: 2025Q3

REPORT INFORMATION
  Report Type: Spontaneous
  Country: US (occurrence: US)
  Receive Date: 20250708
  Receipt Date: 20250816
  Transmission Date: 20251021
  Serious: No
  Sender: ALEXION PHARMACEUTICALS
  Company Number: US-ASTRAZENECA-202507USA003889US

PATIENT
  Sex: Female

DRUGS (16)
  1. TEZSPIRE [Suspect]
     Active Substance: TEZEPELUMAB-EKKO
     Route: 065
  2. TEZSPIRE [Suspect]
     Active Substance: TEZEPELUMAB-EKKO
  3. REPATHA [Suspect]
     Active Substance: EVOLOCUMAB
     Route: 065
  4. ACETAMINOPHEN [Concomitant]
     Active Substance: ACETAMINOPHEN
     Route: 065
  5. ATORVASTATIN [Concomitant]
     Active Substance: ATORVASTATIN
     Route: 065
  6. FLUTICASONE [Concomitant]
     Active Substance: FLUTICASONE
     Route: 065
  7. IBUPROFEN [Concomitant]
     Active Substance: IBUPROFEN
     Route: 065
  8. LEVOTHYROXINE [Concomitant]
     Active Substance: LEVOTHYROXINE
     Route: 065
  9. METHENAMINE [Concomitant]
     Active Substance: METHENAMINE
     Route: 065
  10. METHENAMINE HIPPURATE [Concomitant]
     Active Substance: METHENAMINE HIPPURATE
     Route: 065
  11. PENICILLIN [Concomitant]
     Active Substance: PENICILLIN
     Route: 065
  12. PREGABALIN [Concomitant]
     Active Substance: PREGABALIN
     Route: 065
  13. REPATHA [Concomitant]
     Active Substance: EVOLOCUMAB
     Route: 065
  14. TROSPIUM [Concomitant]
     Active Substance: TROSPIUM
     Route: 065
  15. NIASPAN [Concomitant]
     Active Substance: NIACIN
     Route: 065
  16. PENICILLIN G [Concomitant]
     Active Substance: PENICILLIN G
     Route: 065

REACTIONS (1)
  - Asthma [Unknown]
